FAERS Safety Report 6043558-1 (Version None)
Quarter: 2009Q1

REPORT INFORMATION
  Report Type: 
  Country: None (occurrence: None)
  Receive Date: 20090115
  Receipt Date: 20090112
  Transmission Date: 20090719
  Serious: Yes (Other)
  Sender: FDA-Public Use
  Company Number: SPV1-2009-00044

PATIENT
  Age: 7 Year
  Sex: Female

DRUGS (1)
  1. ADDERALL XR(AMPHETAMINE ASPARTATE, AMPHETAMINE SULFATE, DEXTROAMPHETAM [Suspect]

REACTIONS (8)
  - ALBUMINURIA [None]
  - ANOREXIA [None]
  - DYSPNOEA [None]
  - FATIGUE [None]
  - INJURY [None]
  - TIC [None]
  - URINARY TRACT INFECTION [None]
  - VIRAL INFECTION [None]
